FAERS Safety Report 8079472-X (Version None)
Quarter: 2012Q1

REPORT INFORMATION
  Report Type: 
  Country: None (occurrence: None)
  Receive Date: 20120128
  Receipt Date: 20110824
  Transmission Date: 20120608
  Serious: No
  Sender: FDA-Public Use
  Company Number: US-ABBOTT-11P-163-0849363-00

PATIENT
  Sex: Female
  Weight: 79.45 kg

DRUGS (10)
  1. SYNTHROID [Concomitant]
     Indication: PRODUCT USED FOR UNKNOWN INDICATION
  2. VITAMIN D [Concomitant]
     Indication: PRODUCT USED FOR UNKNOWN INDICATION
  3. HUMIRA [Suspect]
     Indication: RHEUMATOID ARTHRITIS
     Dates: start: 20110720
  4. GLIPIZIDE [Concomitant]
     Indication: DIABETES MELLITUS
  5. ENBREL [Suspect]
     Indication: RHEUMATOID ARTHRITIS
  6. TRAZODONE HCL [Concomitant]
     Indication: PRODUCT USED FOR UNKNOWN INDICATION
  7. NEXIUM [Concomitant]
     Indication: PRODUCT USED FOR UNKNOWN INDICATION
  8. MOBIC [Concomitant]
     Indication: PRODUCT USED FOR UNKNOWN INDICATION
  9. TRIAMTERENT/HCTZ [Concomitant]
     Indication: FLUID IMBALANCE
  10. SALAGEN [Concomitant]
     Indication: DRY MOUTH

REACTIONS (2)
  - FATIGUE [None]
  - INJECTION SITE PAIN [None]
